FAERS Safety Report 5146413-4 (Version None)
Quarter: 2006Q4

REPORT INFORMATION
  Report Type: 
  Country: None (occurrence: None)
  Receive Date: 20061102
  Receipt Date: 20061020
  Transmission Date: 20070319
  Serious: Yes (Hospitalization)
  Sender: FDA-Public Use
  Company Number: 2006130023

PATIENT
  Sex: Female

DRUGS (3)
  1. LYRICA [Suspect]
     Indication: DIABETIC NEUROPATHY
     Dosage: 150 MG (50 MG, 3 IN 1 D)
  2. VALIUM [Suspect]
  3. DRUG, UNSPECIFIED (DRUG, UNSPECIFIED) [Suspect]

REACTIONS (2)
  - BALANCE DISORDER [None]
  - DIZZINESS [None]
